FAERS Safety Report 23745345 (Version 1)
Quarter: 2024Q2

REPORT INFORMATION
  Report Type: Spontaneous
  Country: US (occurrence: None)
  Receive Date: 20240416
  Receipt Date: 20240416
  Transmission Date: 20240715
  Serious: No
  Sender: FDA-Public Use
  Company Number: 2024A070074

PATIENT
  Age: 82 Year

DRUGS (1)
  1. BRILINTA [Suspect]
     Active Substance: TICAGRELOR
     Route: 048

REACTIONS (6)
  - Drug intolerance [Unknown]
  - Bradycardia [Unknown]
  - Sleep disorder [Unknown]
  - COVID-19 [Unknown]
  - Chills [Unknown]
  - Tremor [Unknown]
